FAERS Safety Report 13419020 (Version 2)
Quarter: 2017Q4

REPORT INFORMATION
  Report Type: Spontaneous
  Country: US (occurrence: US)
  Receive Date: 20170407
  Receipt Date: 20171121
  Transmission Date: 20180320
  Serious: No
  Sender: FDA-Public Use
  Company Number: US-JNJFOC-20170319111

PATIENT
  Sex: Male

DRUGS (28)
  1. RISPERDAL M-TAB [Suspect]
     Active Substance: RISPERIDONE
     Indication: ANTISOCIAL PERSONALITY DISORDER
     Route: 048
     Dates: start: 20120913
  2. INVEGA SUSTENNA [Suspect]
     Active Substance: PALIPERIDONE PALMITATE
     Indication: ANTISOCIAL PERSONALITY DISORDER
     Dosage: 234 MG/ 1.5 ML
     Route: 030
     Dates: start: 20130225
  3. INVEGA SUSTENNA [Suspect]
     Active Substance: PALIPERIDONE PALMITATE
     Indication: ANTISOCIAL PERSONALITY DISORDER
     Route: 030
     Dates: start: 20130403
  4. RISPERDAL CONSTA [Suspect]
     Active Substance: RISPERIDONE
     Indication: ANTISOCIAL PERSONALITY DISORDER
     Route: 030
     Dates: start: 20091001, end: 20110803
  5. INVEGA SUSTENNA [Suspect]
     Active Substance: PALIPERIDONE PALMITATE
     Indication: ANTISOCIAL PERSONALITY DISORDER
     Route: 030
     Dates: start: 20111215, end: 20120109
  6. INVEGA SUSTENNA [Suspect]
     Active Substance: PALIPERIDONE PALMITATE
     Indication: SCHIZOPHRENIA
     Route: 030
     Dates: start: 20130131
  7. INVEGA [Suspect]
     Active Substance: PALIPERIDONE
     Indication: ANTISOCIAL PERSONALITY DISORDER
     Route: 048
     Dates: start: 20120822
  8. INVEGA SUSTENNA [Suspect]
     Active Substance: PALIPERIDONE PALMITATE
     Indication: ANTISOCIAL PERSONALITY DISORDER
     Route: 030
     Dates: start: 20120822
  9. INVEGA SUSTENNA [Suspect]
     Active Substance: PALIPERIDONE PALMITATE
     Indication: SCHIZOPHRENIA
     Route: 030
     Dates: start: 20120822
  10. INVEGA [Suspect]
     Active Substance: PALIPERIDONE
     Indication: ANTISOCIAL PERSONALITY DISORDER
     Route: 048
     Dates: start: 20120112, end: 20120120
  11. INVEGA [Suspect]
     Active Substance: PALIPERIDONE
     Indication: SCHIZOPHRENIA
     Route: 048
     Dates: start: 20120822
  12. RISPERDAL CONSTA [Suspect]
     Active Substance: RISPERIDONE
     Indication: ANTISOCIAL PERSONALITY DISORDER
     Route: 030
     Dates: start: 20090729
  13. RISPERDAL CONSTA [Suspect]
     Active Substance: RISPERIDONE
     Indication: SCHIZOPHRENIA
     Route: 030
     Dates: start: 20091001, end: 20110803
  14. INVEGA SUSTENNA [Suspect]
     Active Substance: PALIPERIDONE PALMITATE
     Indication: SCHIZOPHRENIA
     Dosage: 234 MG/ 1.5 ML
     Route: 030
     Dates: start: 20130225
  15. INVEGA [Suspect]
     Active Substance: PALIPERIDONE
     Indication: SCHIZOPHRENIA
     Route: 048
     Dates: start: 20120109
  16. INVEGA SUSTENNA [Suspect]
     Active Substance: PALIPERIDONE PALMITATE
     Indication: ANTISOCIAL PERSONALITY DISORDER
     Dosage: 234/1.5 ML LOADING DOSE
     Route: 030
     Dates: start: 20130124
  17. INVEGA [Suspect]
     Active Substance: PALIPERIDONE
     Indication: ANTISOCIAL PERSONALITY DISORDER
     Route: 048
     Dates: start: 20120824
  18. INVEGA [Suspect]
     Active Substance: PALIPERIDONE
     Indication: ANTISOCIAL PERSONALITY DISORDER
     Route: 048
     Dates: start: 20120109
  19. RISPERDAL CONSTA [Suspect]
     Active Substance: RISPERIDONE
     Indication: SCHIZOPHRENIA
     Route: 030
     Dates: start: 20090729
  20. INVEGA SUSTENNA [Suspect]
     Active Substance: PALIPERIDONE PALMITATE
     Indication: ANTISOCIAL PERSONALITY DISORDER
     Route: 030
     Dates: start: 20130131
  21. INVEGA SUSTENNA [Suspect]
     Active Substance: PALIPERIDONE PALMITATE
     Indication: SCHIZOPHRENIA
     Dosage: 234/1.5 ML LOADING DOSE
     Route: 030
     Dates: start: 20130124
  22. INVEGA SUSTENNA [Suspect]
     Active Substance: PALIPERIDONE PALMITATE
     Indication: SCHIZOPHRENIA
     Route: 030
     Dates: start: 20120118, end: 20120213
  23. RISPERDAL M-TAB [Suspect]
     Active Substance: RISPERIDONE
     Indication: SCHIZOPHRENIA
     Route: 048
     Dates: start: 20120913
  24. INVEGA SUSTENNA [Suspect]
     Active Substance: PALIPERIDONE PALMITATE
     Indication: ANTISOCIAL PERSONALITY DISORDER
     Route: 030
     Dates: start: 20120118, end: 20120213
  25. INVEGA SUSTENNA [Suspect]
     Active Substance: PALIPERIDONE PALMITATE
     Indication: SCHIZOPHRENIA
     Route: 030
     Dates: start: 20130403
  26. INVEGA [Suspect]
     Active Substance: PALIPERIDONE
     Indication: SCHIZOPHRENIA
     Route: 048
     Dates: start: 20120824
  27. INVEGA [Suspect]
     Active Substance: PALIPERIDONE
     Indication: SCHIZOPHRENIA
     Route: 048
     Dates: start: 20120112, end: 20120120
  28. INVEGA SUSTENNA [Suspect]
     Active Substance: PALIPERIDONE PALMITATE
     Indication: SCHIZOPHRENIA
     Route: 030
     Dates: start: 20111215, end: 20120109

REACTIONS (2)
  - Emotional disorder [Unknown]
  - Gynaecomastia [Unknown]
